FAERS Safety Report 12391974 (Version 1)
Quarter: 2016Q2

REPORT INFORMATION
  Report Type: Other
  Country: US (occurrence: US)
  Receive Date: 20160523
  Receipt Date: 20160523
  Transmission Date: 20160815
  Serious: Yes (Death)
  Sender: FDA-Public Use
  Company Number: US-ORCHID HEALTHCARE-1052605

PATIENT
  Age: 87 Year
  Sex: Female

DRUGS (2)
  1. CARVEDILOL. [Suspect]
     Active Substance: CARVEDILOL
     Route: 048
  2. AMLODIPINE BESYLATE. [Suspect]
     Active Substance: AMLODIPINE BESYLATE
     Route: 048

REACTIONS (10)
  - Hypoxia [Unknown]
  - Bradycardia [Unknown]
  - Mental status changes [Unknown]
  - Acute kidney injury [Unknown]
  - Metabolic acidosis [Unknown]
  - Hypotension [Unknown]
  - Lung infiltration [Unknown]
  - Overdose [Fatal]
  - Acute respiratory distress syndrome [Unknown]
  - Respiratory failure [Unknown]
